FAERS Safety Report 6142954-1 (Version None)
Quarter: 2009Q2

REPORT INFORMATION
  Report Type: 
  Country: None (occurrence: None)
  Receive Date: 20090403
  Receipt Date: 20090325
  Transmission Date: 20091009
  Serious: Yes (Hospitalization, Other)
  Sender: FDA-Public Use
  Company Number: GB-ELI_LILLY_AND_COMPANY-GB200903006504

PATIENT
  Age: 56 Year
  Sex: Male
  Weight: 147.2 kg

DRUGS (8)
  1. BYETTA [Suspect]
     Indication: TYPE 2 DIABETES MELLITUS
     Dosage: 10 UG, 2/D
     Route: 058
     Dates: start: 20081023
  2. AMITRIPTYLINE HCL [Concomitant]
     Dosage: UNK, UNKNOWN
     Route: 065
  3. AMLODIPINE BESYLATE [Concomitant]
     Dosage: UNK, UNKNOWN
     Route: 065
  4. EZETIMIBE [Concomitant]
     Dosage: 10 MG, UNKNOWN
     Route: 065
  5. GLICLAZIDE [Concomitant]
     Indication: TYPE 2 DIABETES MELLITUS
     Dosage: 80 MG, 2/D
     Route: 048
  6. LISINOPRIL [Concomitant]
     Dosage: UNK, UNKNOWN
     Route: 065
  7. METFORMIN HCL [Concomitant]
     Dosage: 3 G, UNKNOWN
     Route: 048
  8. SIMVASTATIN [Concomitant]
     Dosage: 40 MG, UNKNOWN
     Route: 065

REACTIONS (2)
  - DYSPNOEA [None]
  - SUPRAVENTRICULAR TACHYCARDIA [None]
